FAERS Safety Report 5882692-3 (Version None)
Quarter: 2008Q3

REPORT INFORMATION
  Report Type: 
  Country: None (occurrence: None)
  Receive Date: 20080913
  Receipt Date: 20080812
  Transmission Date: 20090109
  Serious: No
  Sender: FDA-Public Use
  Company Number: US-ABBOTT-08P-163-0470500-00

PATIENT
  Sex: Female
  Weight: 54.48 kg

DRUGS (8)
  1. HUMIRA [Suspect]
     Indication: CROHN'S DISEASE
     Route: 050
     Dates: start: 20080729, end: 20080729
  2. HUMIRA [Suspect]
     Route: 050
     Dates: start: 20080812
  3. PHENERGAN HCL [Concomitant]
     Indication: NAUSEA
     Route: 048
     Dates: start: 19990101
  4. ANTYLCORT [Concomitant]
     Indication: CROHN'S DISEASE
     Dosage: 3 MILLIGRAMS - 2 TABLETS
     Route: 048
     Dates: start: 20050101
  5. ROPINIROLE HYDROCHLORIDE [Concomitant]
     Indication: RESTLESS LEGS SYNDROME
     Route: 048
     Dates: start: 20060101
  6. MIRTAZAPINE [Concomitant]
     Indication: INSOMNIA
     Dosage: AT BEDTIME
     Route: 048
     Dates: start: 20060101
  7. VENLAFAXINE HCL [Concomitant]
     Indication: STRESS
     Route: 048
     Dates: start: 20060101
  8. VENLAFAXINE HCL [Concomitant]

REACTIONS (2)
  - NAUSEA [None]
  - VOMITING [None]
